FAERS Safety Report 4862633-8 (Version None)
Quarter: 2005Q4

REPORT INFORMATION
  Report Type: 
  Country: None (occurrence: None)
  Receive Date: 20051219
  Receipt Date: 20051219
  Transmission Date: 20060501
  Serious: Yes (Death, Life-Threatening, Hospitalization)
  Sender: FDA-Public Use
  Company Number: None

PATIENT
  Sex: Female
  Weight: 71.8498 kg

DRUGS (2)
  1. IRINOTECAN          PHARMACIA + UPJOHN COMPANY [Suspect]
     Indication: PANCREATIC CARCINOMA METASTATIC
     Dosage: 65MG/M2   Q 21 DAYS   IV DRIP
     Route: 041
     Dates: start: 20051128
  2. DOCETAXEL   40MG/ML      AVENTIS PHARMACEUTICALS [Suspect]
     Indication: PANCREATIC CARCINOMA METASTATIC
     Dosage: 160MG/M2  Q 21 DAYS  IV DRIP
     Route: 041
     Dates: start: 20051128

REACTIONS (8)
  - DYSPNOEA [None]
  - HYPOTENSION [None]
  - ORTHOPNOEA [None]
  - OXYGEN SATURATION ABNORMAL [None]
  - PLEURAL EFFUSION [None]
  - RENAL FAILURE ACUTE [None]
  - SEPSIS [None]
  - THERAPEUTIC AGENT TOXICITY [None]
